FAERS Safety Report 6900929-6 (Version None)
Quarter: 2010Q3

REPORT INFORMATION
  Report Type: 
  Country: None (occurrence: None)
  Receive Date: 20100803
  Receipt Date: 20100727
  Transmission Date: 20110219
  Serious: Yes (Hospitalization)
  Sender: FDA-Public Use
  Company Number: A0873476A

PATIENT
  Age: 54 Year
  Sex: Female

DRUGS (1)
  1. AVANDIA [Suspect]
     Dosage: 8MG PER DAY
     Route: 048
     Dates: start: 19990101, end: 20041201

REACTIONS (6)
  - CARDIAC ASSISTANCE DEVICE USER [None]
  - CARDIAC DISORDER [None]
  - CARDIAC FAILURE CONGESTIVE [None]
  - CORONARY ARTERY OCCLUSION [None]
  - HEPATIC FAILURE [None]
  - MYOCARDIAL INFARCTION [None]
